FAERS Safety Report 8960816 (Version 1)
Quarter: 2012Q4

REPORT INFORMATION
  Report Type: Spontaneous
  Country: US (occurrence: None)
  Receive Date: 20121211
  Receipt Date: 20121211
  Transmission Date: 20130627
  Serious: Yes (Other)
  Sender: FDA-Public Use
  Company Number: None

PATIENT
  Age: 34 Year
  Sex: Male
  Weight: 74.84 kg

DRUGS (1)
  1. ZYRTEC-D [Suspect]
     Indication: HOUSE DUST MITE ALLERGY
     Dosage: 1 pill, daily, po
     Route: 048
     Dates: start: 20100101, end: 20121206

REACTIONS (2)
  - Pruritus [None]
  - Urticaria [None]
